FAERS Safety Report 5705220-1 (Version None)
Quarter: 2008Q2

REPORT INFORMATION
  Report Type: 
  Country: None (occurrence: None)
  Receive Date: 20080410
  Receipt Date: 20080303
  Transmission Date: 20081010
  Serious: Yes (Hospitalization)
  Sender: FDA-Public Use
  Company Number: PL-JNJFOC-20080300451

PATIENT
  Age: 71 Year
  Sex: Male

DRUGS (1)
  1. DECITABINE             (DECITABINE) [Suspect]
     Indication: ACUTE MYELOID LEUKAEMIA
     Dosage: 20 MG/M2, INTRAVENOUS
     Route: 042
     Dates: start: 20080214, end: 20080218

REACTIONS (1)
  - BRONCHITIS [None]
